FAERS Safety Report 9181138 (Version 2)
Quarter: 2013Q1

REPORT INFORMATION
  Report Type: Spontaneous
  Country: US (occurrence: US)
  Receive Date: 20130322
  Receipt Date: 20130322
  Transmission Date: 20140127
  Serious: No
  Sender: FDA-Public Use
  Company Number: US-MYLANLABS-2012S1008282

PATIENT
  Age: 22 Year
  Sex: Male
  Weight: 63.5 kg

DRUGS (2)
  1. EMSAM [Suspect]
     Indication: DEPRESSION
     Dosage: CHANGES PATCHES Q.D.
     Route: 062
     Dates: start: 201202
  2. KLONOPIN [Concomitant]
     Indication: ANXIETY

REACTIONS (3)
  - Drug effect decreased [Not Recovered/Not Resolved]
  - Depressed mood [Not Recovered/Not Resolved]
  - Mood altered [Not Recovered/Not Resolved]
